FAERS Safety Report 8469839-X (Version None)
Quarter: 2012Q2

REPORT INFORMATION
  Report Type: 
  Country: None (occurrence: None)
  Receive Date: 20120626
  Receipt Date: 20120618
  Transmission Date: 20120825
  Serious: Yes (Hospitalization, Other)
  Sender: FDA-Public Use
  Company Number: TR-AMGEN-TURSP2012035270

PATIENT
  Age: 61 Year
  Sex: Male
  Weight: 103 kg

DRUGS (2)
  1. CORTISONE ACETATE [Suspect]
     Dosage: UNK
  2. ENBREL [Suspect]
     Indication: RHEUMATOID ARTHRITIS
     Dosage: 50 MG, WEEKLY
     Route: 058
     Dates: start: 20120302, end: 20120501

REACTIONS (6)
  - DYSPHONIA [None]
  - VIITH NERVE PARALYSIS [None]
  - WEIGHT INCREASED [None]
  - THYROID NEOPLASM [None]
  - DEAFNESS [None]
  - INCREASED APPETITE [None]
